FAERS Safety Report 4892347-X (Version None)
Quarter: 2006Q1

REPORT INFORMATION
  Report Type: 
  Country: None (occurrence: None)
  Receive Date: 20060126
  Receipt Date: 19990825
  Transmission Date: 20060701
  Serious: Yes (Hospitalization)
  Sender: FDA-Public Use
  Company Number: JP-GLAXOSMITHKLINE-B0225331A

PATIENT
  Age: 65 Year
  Sex: Male

DRUGS (1)
  1. 49653 [Suspect]
     Indication: DIABETES MELLITUS
     Dosage: 8MG PER DAY
     Route: 048
     Dates: start: 19990728, end: 19990825

REACTIONS (6)
  - CANDIDIASIS [None]
  - CRYPTOGENIC ORGANIZING PNEUMONIA [None]
  - ENTEROCOCCAL INFECTION [None]
  - NASOPHARYNGITIS [None]
  - PYREXIA [None]
  - SPUTUM CULTURE POSITIVE [None]
